FAERS Safety Report 15165379 (Version 1)
Quarter: 2018Q3

REPORT INFORMATION
  Report Type: Spontaneous
  Country: US (occurrence: US)
  Receive Date: 20180719
  Receipt Date: 20180719
  Transmission Date: 20181010
  Serious: Yes (Life-Threatening, Other)
  Sender: FDA-Public Use
  Company Number: US-GLENMARK PHARMACEUTICALS-2018GMK036580

PATIENT
  Age: 65 Year
  Sex: Male

DRUGS (11)
  1. 6?MERCAPTOPURINE MONOHYDRATE [Suspect]
     Active Substance: MERCAPTOPURINE
     Indication: ACUTE PROMYELOCYTIC LEUKAEMIA
     Dosage: 50 MG, QD (DAILY) (MAINTENANCE THERAPY); CYCLICAL
     Route: 065
  2. ARSENIC TRIOXIDE [Suspect]
     Active Substance: ARSENIC TRIOXIDE
     Indication: ACUTE PROMYELOCYTIC LEUKAEMIA
     Dosage: 0.15 MG/KG, QD (DAILY); CYCLICAL
     Route: 065
  3. CYTARABINE. [Suspect]
     Active Substance: CYTARABINE
     Indication: ACUTE PROMYELOCYTIC LEUKAEMIA
     Dosage: THREE CYCLES OF CONSOLIDATION; CYCLICAL
  4. TRETINOIN. [Suspect]
     Active Substance: TRETINOIN
     Dosage: 45 MG/M2 /DAY ; CYCLICAL
     Route: 065
  5. METHOTREXATE. [Suspect]
     Active Substance: METHOTREXATE
     Indication: ACUTE PROMYELOCYTIC LEUKAEMIA
     Dosage: 12 MG, CYCLICAL
     Route: 037
  6. METHOTREXATE. [Suspect]
     Active Substance: METHOTREXATE
     Dosage: 15 MG, WEEKLY (MAINTENANCE THERAPY); CYCLICAL
  7. IDARUBICIN [Suspect]
     Active Substance: IDARUBICIN
     Dosage: UNK
     Route: 065
  8. TRETINOIN. [Suspect]
     Active Substance: TRETINOIN
     Indication: ACUTE PROMYELOCYTIC LEUKAEMIA
     Dosage: MAINTENANCE THERAPY ? 50 MG BID ; CYCLICAL
     Route: 065
  9. TRETINOIN. [Suspect]
     Active Substance: TRETINOIN
     Dosage: THREE CYCLES OF CONSOLIDATION; CYCLICAL
     Route: 065
  10. IDARUBICIN [Suspect]
     Active Substance: IDARUBICIN
     Indication: ACUTE PROMYELOCYTIC LEUKAEMIA
     Dosage: THREE CYCLES OF CONSOLIDATION; CYCLICAL
     Route: 065
  11. MITOXANTRONE [Suspect]
     Active Substance: MITOXANTRONE HYDROCHLORIDE
     Indication: ACUTE PROMYELOCYTIC LEUKAEMIA
     Dosage: THREE CYCLES OF CONSOLIDATION; CYCLICAL
     Route: 065

REACTIONS (4)
  - Subarachnoid haemorrhage [Recovered/Resolved]
  - Haematopoietic neoplasm [Recovered/Resolved]
  - Cytogenetic abnormality [Unknown]
  - Paraesthesia [Unknown]
